FAERS Safety Report 19457893 (Version 1)
Quarter: 2021Q2

REPORT INFORMATION
  Report Type: Spontaneous
  Country: US (occurrence: US)
  Receive Date: 20210624
  Receipt Date: 20210624
  Transmission Date: 20210717
  Serious: No
  Sender: FDA-Public Use
  Company Number: US-DECIPHERA PHARMACEUTICALS LLC-2021US000322

PATIENT
  Sex: Male

DRUGS (1)
  1. QINLOCK [Suspect]
     Active Substance: RIPRETINIB
     Indication: GASTROINTESTINAL STROMAL TUMOUR
     Dosage: 150 MILLIGRAM, QD
     Route: 048
     Dates: start: 20210409

REACTIONS (4)
  - Constipation [Unknown]
  - Myalgia [Recovering/Resolving]
  - Rash macular [Unknown]
  - Bone pain [Recovering/Resolving]

NARRATIVE: CASE EVENT DATE: 2021
